FAERS Safety Report 4506608-7 (Version None)
Quarter: 2004Q4

REPORT INFORMATION
  Report Type: 
  Country: None (occurrence: None)
  Receive Date: 20041122
  Receipt Date: 20041028
  Transmission Date: 20050328
  Serious: Yes (Death, Hospitalization, Other)
  Sender: FDA-Public Use
  Company Number: JP-BRISTOL-MYERS SQUIBB COMPANY-12748810

PATIENT
  Age: 77 Year
  Sex: Female

DRUGS (9)
  1. BRIPLATIN [Suspect]
     Indication: GASTRIC CANCER RECURRENT
     Route: 041
     Dates: start: 20040827, end: 20040827
  2. TS-1 [Suspect]
     Indication: GASTRIC CANCER RECURRENT
     Dosage: THERAPY DATES: 27-AUG TO 07-SEP-2004
     Route: 048
     Dates: start: 20040907, end: 20040907
  3. SOLITA-T NO. 3 [Concomitant]
     Dosage: 28-SEP-2004: 2 DOSES PER DAY
     Route: 041
     Dates: start: 20040827, end: 20040828
  4. BUFFERIN [Concomitant]
     Route: 048
     Dates: start: 20040827, end: 20040907
  5. TICLOPIDINE HCL [Concomitant]
     Route: 048
     Dates: start: 20040827, end: 20040907
  6. NIFEDIPINE [Concomitant]
     Route: 048
     Dates: start: 20040827, end: 20040907
  7. BROTIZOLAM [Concomitant]
     Route: 048
     Dates: start: 20040827, end: 20040907
  8. FLUNITRAZEPAM [Concomitant]
     Route: 048
     Dates: start: 20040827, end: 20040915
  9. MERISLON [Concomitant]
     Route: 048
     Dates: start: 20040827, end: 20040907

REACTIONS (9)
  - ANAEMIA [None]
  - DIARRHOEA [None]
  - GASTRIC CANCER [None]
  - HEPATORENAL FAILURE [None]
  - PLATELET COUNT DECREASED [None]
  - PYREXIA [None]
  - RESPIRATORY FAILURE [None]
  - STOMATITIS [None]
  - WHITE BLOOD CELL COUNT DECREASED [None]
